FAERS Safety Report 5852376-6 (Version None)
Quarter: 2008Q3

REPORT INFORMATION
  Report Type: 
  Country: None (occurrence: None)
  Receive Date: 20080821
  Receipt Date: 20080818
  Transmission Date: 20090109
  Serious: Yes (Life-Threatening, Hospitalization, Disabling)
  Sender: FDA-Public Use
  Company Number: CA-BRISTOL-MYERS SQUIBB COMPANY-14306021

PATIENT
  Age: 82 Year
  Sex: Female

DRUGS (24)
  1. ORENCIA [Suspect]
     Indication: RHEUMATOID ARTHRITIS
     Dosage: THRPY:19FEB,4MAR,18MAR,8APR.29APR08.
     Route: 042
     Dates: start: 20080219
  2. PREDNISONE TAB [Concomitant]
  3. ASPIRIN [Concomitant]
  4. ALENDRONATE SODIUM [Concomitant]
  5. CALCITONIN [Concomitant]
  6. CALCIUM [Concomitant]
  7. CEPHALEXIN [Concomitant]
  8. CITALOPRAM HYDROBROMIDE [Concomitant]
  9. VITAMIN B-12 [Concomitant]
  10. DALTEPARIN SODIUM [Concomitant]
  11. SODIUM [Concomitant]
  12. FERROUS SULFATE TAB [Concomitant]
  13. FUROSEMIDE [Concomitant]
  14. HYDROMORPHONE HCL [Concomitant]
  15. LACTOSE [Concomitant]
  16. NAPROXEN [Concomitant]
  17. NITROGLYCERIN [Concomitant]
  18. CRANBERRY [Concomitant]
  19. POTASSIUM CHLORIDE [Concomitant]
  20. RABEPRAZOLE SODIUM [Concomitant]
  21. RAMIPRIL [Concomitant]
  22. SIMVASTIN [Concomitant]
  23. WARFARIN SODIUM [Concomitant]
  24. SODIUM AUROTHIOMALATE [Concomitant]

REACTIONS (2)
  - CLOSTRIDIAL INFECTION [None]
  - PULMONARY EMBOLISM [None]
